FAERS Safety Report 4699444-2 (Version None)
Quarter: 2005Q2

REPORT INFORMATION
  Report Type: 
  Country: None (occurrence: None)
  Receive Date: 20050624
  Receipt Date: 20050620
  Transmission Date: 20051028
  Serious: Yes (Hospitalization)
  Sender: FDA-Public Use
  Company Number: PHEH2005US06981

PATIENT
  Age: 45 Year
  Sex: Male

DRUGS (2)
  1. CLOZAPINE [Suspect]
     Indication: SCHIZOPHRENIA
     Dosage: APPROXIMATELY 200MG/DAY
     Route: 048
     Dates: start: 20050530, end: 20050610
  2. CLOZARIL [Suspect]
     Indication: SCHIZOPHRENIA
     Dosage: APPROXIMATELY 200MG/DAY
     Route: 048
     Dates: end: 20050529

REACTIONS (6)
  - ASTHMA [None]
  - DYSPNOEA [None]
  - EMPYEMA [None]
  - EMPYEMA DRAINAGE [None]
  - LEUKOPENIA [None]
  - PLEURAL EFFUSION [None]
